FAERS Safety Report 8010790-7 (Version None)
Quarter: 2011Q4

REPORT INFORMATION
  Report Type: 
  Country: None (occurrence: None)
  Receive Date: 20111228
  Receipt Date: 20111220
  Transmission Date: 20120403
  Serious: Yes (Other)
  Sender: FDA-Public Use
  Company Number: GB-JNJFOC-20110412437

PATIENT
  Age: 58 Year
  Sex: Female
  Weight: 74 kg

DRUGS (3)
  1. AZULFIDINE [Concomitant]
     Dates: start: 20041015
  2. REMICADE [Suspect]
     Indication: RHEUMATOID ARTHRITIS
     Route: 042
     Dates: start: 20030415, end: 20030415
  3. METHOTREXATE [Concomitant]
     Dates: start: 20080130

REACTIONS (1)
  - COLON CANCER [None]
